FAERS Safety Report 8459695-8 (Version None)
Quarter: 2012Q2

REPORT INFORMATION
  Report Type: 
  Country: None (occurrence: None)
  Receive Date: 20120622
  Receipt Date: 20120613
  Transmission Date: 20120825
  Serious: Yes (Other)
  Sender: FDA-Public Use
  Company Number: JP-VERTEX PHARMACEUTICALS INC.-AE-2012-004975

PATIENT
  Age: 55 Year
  Sex: Male

DRUGS (13)
  1. RIBAVIRIN [Concomitant]
     Indication: HEPATITIS C
     Route: 048
     Dates: start: 20120217, end: 20120413
  2. MIRABEGRON [Concomitant]
     Route: 048
     Dates: start: 20120221
  3. HIRUDOID [Concomitant]
     Route: 051
     Dates: start: 20120224
  4. RIBAVIRIN [Concomitant]
     Route: 048
     Dates: start: 20120504, end: 20120511
  5. TELAVIC (TELAPREVIR) [Suspect]
     Indication: HEPATITIS C
     Route: 048
     Dates: start: 20120217, end: 20120511
  6. RIBAVIRIN [Concomitant]
     Route: 048
     Dates: start: 20120512
  7. CONFATANIN [Concomitant]
     Route: 048
     Dates: start: 20120217
  8. RHYTHMY [Concomitant]
     Route: 048
     Dates: start: 20120229, end: 20120302
  9. RIBAVIRIN [Concomitant]
     Route: 048
     Dates: start: 20120414, end: 20120503
  10. LANIRAPID [Concomitant]
     Route: 051
     Dates: start: 20120309
  11. PEGINTERFERON ALFA-2B [Concomitant]
     Indication: HEPATITIS C
     Route: 058
     Dates: start: 20120217
  12. CLOBETASOL PROPIONATE [Concomitant]
     Route: 061
     Dates: start: 20120224
  13. KERATINAMIN [Concomitant]
     Route: 061
     Dates: start: 20120309

REACTIONS (2)
  - VISUAL FIELD DEFECT [None]
  - LOSS OF CONSCIOUSNESS [None]
